FAERS Safety Report 11439414 (Version 1)
Quarter: 2015Q3

REPORT INFORMATION
  Report Type: Spontaneous
  Country: US (occurrence: US)
  Receive Date: 20150901
  Receipt Date: 20150901
  Transmission Date: 20151125
  Serious: No
  Sender: FDA-Public Use
  Company Number: US-ROCHE-1148464

PATIENT
  Sex: Female

DRUGS (3)
  1. PEGASYS [Suspect]
     Active Substance: PEGINTERFERON ALFA-2A
     Indication: CHRONIC HEPATITIS C
     Route: 058
     Dates: start: 20120622
  2. BOCEPREVIR [Concomitant]
     Active Substance: BOCEPREVIR
     Route: 048
     Dates: start: 20120720
  3. RIBASPHERE [Concomitant]
     Active Substance: RIBAVIRIN
     Route: 048
     Dates: start: 20120622

REACTIONS (11)
  - Rhinorrhoea [Unknown]
  - Tinnitus [Unknown]
  - Tachycardia [Unknown]
  - Feeling abnormal [Unknown]
  - Insomnia [Unknown]
  - Dysgeusia [Unknown]
  - Cough [Unknown]
  - Fatigue [Unknown]
  - Dyspnoea [Unknown]
  - White blood cell count decreased [Unknown]
  - Anaemia [Unknown]
